FAERS Safety Report 6423652-3 (Version None)
Quarter: 2009Q4

REPORT INFORMATION
  Report Type: 
  Country: None (occurrence: None)
  Receive Date: 20091102
  Receipt Date: 20091021
  Transmission Date: 20100525
  Serious: Yes (Other)
  Sender: FDA-Public Use
  Company Number: US-JNJCH-2009027965

PATIENT
  Age: 37 Year
  Sex: Female
  Weight: 90.7 kg

DRUGS (3)
  1. LISTERINE WHITENING VIBRANT WHITE PRE-BRUSH RINSE [Suspect]
     Indication: DENTAL CARE
     Dosage: TEXT:1/2 CAPFUL ONCE DAILY
     Route: 048
     Dates: start: 20091007, end: 20091016
  2. OXYCODONE [Concomitant]
     Indication: DRUG USE FOR UNKNOWN INDICATION
     Dosage: TEXT:15 MG THREE TIMES
     Route: 065
  3. XANAX [Concomitant]
     Indication: DRUG USE FOR UNKNOWN INDICATION
     Dosage: TEXT:1 MG TWO TIMES
     Route: 065

REACTIONS (3)
  - APPLICATION SITE BURN [None]
  - APPLICATION SITE PAIN [None]
  - APPLICATION SITE VESICLES [None]
